FAERS Safety Report 8262276-2 (Version None)
Quarter: 2012Q2

REPORT INFORMATION
  Report Type: 
  Country: None (occurrence: None)
  Receive Date: 20120405
  Receipt Date: 20120330
  Transmission Date: 20120825
  Serious: Yes (Death, Hospitalization, Other)
  Sender: FDA-Public Use
  Company Number: JP-ELI_LILLY_AND_COMPANY-JP201201009044

PATIENT
  Sex: Female
  Weight: 43 kg

DRUGS (9)
  1. METHYCOBAL [Concomitant]
     Dosage: 1 MG, UNK
     Route: 030
     Dates: start: 20111119
  2. LOXONIN [Concomitant]
     Indication: ANTIPYRESIS
     Dosage: 60 MG, QD
     Route: 048
     Dates: start: 20111106, end: 20120118
  3. SAIREI-TO [Concomitant]
     Indication: RASH
     Dosage: 3 G, TID
     Route: 048
     Dates: start: 20120113, end: 20120118
  4. PANVITAN [Concomitant]
     Dosage: 1 G, UNK
     Route: 048
     Dates: start: 20111119, end: 20120117
  5. MEDICON [Concomitant]
     Indication: ANTITUSSIVE THERAPY
     Dosage: 15 MG, TID
     Route: 048
     Dates: start: 20111105, end: 20111201
  6. LANSOPRAZOLE [Concomitant]
     Indication: PROPHYLAXIS AGAINST GASTROINTESTINAL ULCER
     Dosage: 15 MG, QD
     Route: 048
     Dates: start: 20111122, end: 20120129
  7. ALIMTA [Suspect]
     Indication: LUNG ADENOCARCINOMA STAGE IV
     Dosage: 500 MG/M2, UNK
     Route: 042
     Dates: start: 20111125, end: 20111226
  8. CARBOPLATIN [Concomitant]
     Indication: LUNG ADENOCARCINOMA STAGE IV
     Dosage: 625 MG, UNK
     Route: 042
     Dates: start: 20111125, end: 20111226
  9. MUCOSTA [Concomitant]
     Indication: PROPHYLAXIS AGAINST GASTROINTESTINAL ULCER
     Dosage: 100 MG, QD
     Route: 048
     Dates: start: 20111106, end: 20120118

REACTIONS (3)
  - INTERSTITIAL LUNG DISEASE [None]
  - RASH [None]
  - HAEMOGLOBIN DECREASED [None]
